FAERS Safety Report 6836118-3 (Version None)
Quarter: 2010Q3

REPORT INFORMATION
  Report Type: 
  Country: None (occurrence: None)
  Receive Date: 20100713
  Receipt Date: 20100630
  Transmission Date: 20110219
  Serious: Yes (Other)
  Sender: FDA-Public Use
  Company Number: US-ROCHE-712706

PATIENT

DRUGS (10)
  1. SAQUINAVIR [Suspect]
     Indication: PRODUCT USED FOR UNKNOWN INDICATION
  2. LAMIVUDINE [Suspect]
     Indication: PRODUCT USED FOR UNKNOWN INDICATION
  3. RITONAVIR [Suspect]
  4. FOSAMPRENAVIR CALCIUM [Suspect]
  5. TENOFOVIR DISOPROXIL FUMARATE [Suspect]
     Indication: PRODUCT USED FOR UNKNOWN INDICATION
  6. LOPINAVIR/RITONAVIR [Suspect]
  7. DIDANOSINE [Suspect]
  8. STAVUDINE [Suspect]
     Indication: PRODUCT USED FOR UNKNOWN INDICATION
  9. EFAVIRENZ [Suspect]
     Indication: PRODUCT USED FOR UNKNOWN INDICATION
  10. ABACAVIR [Suspect]
     Indication: PRODUCT USED FOR UNKNOWN INDICATION

REACTIONS (1)
  - PLAGIOCEPHALY [None]
